FAERS Safety Report 8758872 (Version 1)
Quarter: 2012Q4

REPORT INFORMATION
  Report Type: 
  Country: BR (occurrence: BR)
  Receive Date: 20120829
  Receipt Date: 20120829
  Transmission Date: 20130627
  Serious: Yes (Other)
  Sender: FDA-Public Use
  Company Number: PHHY2012BR074189

PATIENT
  Age: 37 Year
  Sex: Female

DRUGS (11)
  1. RITALINA [Suspect]
     Indication: ATTENTION DEFICIT/HYPERACTIVITY DISORDER
     Dosage: 2 tablets daily
  2. RITALINA [Suspect]
     Dosage: 12 DF, QD
  3. RITALINA [Suspect]
     Dosage: 14 DF, QD
  4. RITALINA [Suspect]
     Dosage: 16 DF, QD
  5. RITALINA [Suspect]
     Dosage: 18 DF, QD
  6. RITALINA [Suspect]
     Dosage: 20 DF, QD
  7. RITALINA [Suspect]
     Dosage: UNK UKN, UNK
  8. VENLAFAXINE HYDROCHLORIDE [Concomitant]
     Indication: DEPRESSION
     Dosage: UNK UKN, UNK
  9. LITHIUM CARBONATE [Concomitant]
     Dosage: UNK UKN, UNK
  10. LEXAPRO [Concomitant]
     Indication: ATTENTION DEFICIT/HYPERACTIVITY DISORDER
     Dosage: UNK UKN, UNK
  11. LEXAPRO [Concomitant]
     Dosage: UNK UKN, UNK

REACTIONS (4)
  - Depression [Not Recovered/Not Resolved]
  - Drug dependence [Unknown]
  - Abnormal behaviour [Unknown]
  - Vomiting [Recovered/Resolved]
